FAERS Safety Report 4827730-1 (Version None)
Quarter: 2005Q4

REPORT INFORMATION
  Report Type: 
  Country: None (occurrence: None)
  Receive Date: 20051110
  Receipt Date: 20051027
  Transmission Date: 20060501
  Serious: Yes (Death, Other)
  Sender: FDA-Public Use
  Company Number: AU_051009019

PATIENT
  Age: 74 Year
  Sex: Male

DRUGS (1)
  1. XIGRIS [Suspect]
     Dates: start: 20050905

REACTIONS (3)
  - ADVERSE EVENT [None]
  - COAGULOPATHY [None]
  - RESPIRATORY TRACT HAEMORRHAGE [None]
